FAERS Safety Report 4598490-7 (Version None)
Quarter: 2005Q1

REPORT INFORMATION
  Report Type: 
  Country: None (occurrence: None)
  Receive Date: 20050204
  Receipt Date: 20040114
  Transmission Date: 20050727
  Serious: Yes (Hospitalization)
  Sender: FDA-Public Use
  Company Number: PHEH2004US00853

PATIENT
  Age: 60 Year
  Sex: Male

DRUGS (5)
  1. CLOZARIL [Suspect]
     Indication: SCHIZOPHRENIA
     Dosage: 525, QD, ORAL
     Route: 048
     Dates: start: 20030101, end: 20040104
  2. COGENTIN [Concomitant]
  3. REGLAN [Concomitant]
  4. PROTONIX [Concomitant]
  5. COZAAR [Concomitant]

REACTIONS (4)
  - AGRANULOCYTOSIS [None]
  - DELIRIUM [None]
  - DYSARTHRIA [None]
  - PYREXIA [None]
